FAERS Safety Report 15668828 (Version 1)
Quarter: 2018Q4

REPORT INFORMATION
  Report Type: Spontaneous
  Country: US (occurrence: US)
  Receive Date: 20181129
  Receipt Date: 20181129
  Transmission Date: 20190205
  Serious: Yes (Hospitalization, Other)
  Sender: FDA-Public Use
  Company Number: US-HTU-2018US017736

PATIENT
  Sex: Female

DRUGS (2)
  1. VALCHLOR [Suspect]
     Active Substance: MECHLORETHAMINE
     Indication: MYCOSIS FUNGOIDES
     Dosage: UNK, UNKNOWN
     Route: 061
     Dates: start: 20181003
  2. VALCHLOR [Suspect]
     Active Substance: MECHLORETHAMINE
     Dosage: UNK, UNKNOWN
     Route: 061
     Dates: start: 20181007, end: 20181115

REACTIONS (4)
  - Dyspnoea [Unknown]
  - Nausea [Unknown]
  - Skin hyperpigmentation [Unknown]
  - Cardiac failure [Unknown]
